FAERS Safety Report 5331264-8 (Version None)
Quarter: 2007Q2

REPORT INFORMATION
  Report Type: 
  Country: None (occurrence: None)
  Receive Date: 20070522
  Receipt Date: 20070515
  Transmission Date: 20071010
  Serious: Yes (Hospitalization)
  Sender: FDA-Public Use
  Company Number: US-ELI_LILLY_AND_COMPANY-US200605006009

PATIENT
  Age: 59 Year
  Sex: Male
  Weight: 108.84 kg

DRUGS (2)
  1. ZYPREXA [Suspect]
     Dosage: 7.5 MG, UNKNOWN
     Route: 065
     Dates: start: 20030101, end: 20040301
  2. ZYPREXA [Suspect]
     Dosage: 15 MG, UNKNOWN
     Route: 065
     Dates: start: 20030101, end: 20040301

REACTIONS (4)
  - DIABETES MELLITUS [None]
  - METABOLIC DISORDER [None]
  - POST-TRAUMATIC STRESS DISORDER [None]
  - WEIGHT INCREASED [None]
